FAERS Safety Report 20485145 (Version 2)
Quarter: 2022Q1

REPORT INFORMATION
  Report Type: Spontaneous
  Country: US (occurrence: US)
  Receive Date: 20220217
  Receipt Date: 20220320
  Transmission Date: 20220423
  Serious: Yes (Other)
  Sender: FDA-Public Use
  Company Number: US-SA-SAC20220216000974

PATIENT
  Sex: Male

DRUGS (6)
  1. ALPROLIX [Suspect]
     Active Substance: EFTRENONACOG ALFA
     Indication: Factor IX deficiency
     Dosage: 12000 IU, PRN ((10800-13200) DAILY AS NEEDED FOR BREAKTHROUGH BLEEDING THAT OCCURS DESPITE PROPHYLAX
     Route: 042
  2. ALPROLIX [Suspect]
     Active Substance: EFTRENONACOG ALFA
     Indication: Factor IX deficiency
     Dosage: 12000 IU, PRN ((10800-13200) DAILY AS NEEDED FOR BREAKTHROUGH BLEEDING THAT OCCURS DESPITE PROPHYLAX
     Route: 042
  3. ALPROLIX [Suspect]
     Active Substance: EFTRENONACOG ALFA
     Indication: Prophylaxis
     Dosage: 12500 IU, QW (11250- 13750)
     Route: 042
     Dates: start: 201506
  4. ALPROLIX [Suspect]
     Active Substance: EFTRENONACOG ALFA
     Indication: Prophylaxis
     Dosage: 12500 IU, QW (11250- 13750)
     Route: 042
     Dates: start: 201506
  5. ALPROLIX [Suspect]
     Active Substance: EFTRENONACOG ALFA
     Dosage: 8854 IU, QW
     Route: 042
  6. ALPROLIX [Suspect]
     Active Substance: EFTRENONACOG ALFA
     Dosage: 8854 IU, QW
     Route: 042

REACTIONS (1)
  - Haemorrhage [Not Recovered/Not Resolved]
